FAERS Safety Report 17689246 (Version 1)
Quarter: 2020Q2

REPORT INFORMATION
  Report Type: Spontaneous
  Country: DK (occurrence: DK)
  Receive Date: 20200421
  Receipt Date: 20200421
  Transmission Date: 20200714
  Serious: Yes (Death, Life-Threatening)
  Sender: FDA-Public Use
  Company Number: DK-JNJFOC-20200414255

PATIENT
  Age: 92 Year
  Sex: Female

DRUGS (5)
  1. RIVAROXABAN [Suspect]
     Active Substance: RIVAROXABAN
     Indication: THROMBOSIS PROPHYLAXIS
     Dosage: 15 MG, QD
     Route: 048
     Dates: start: 20160615
  2. MACROGOL;POTASSIUM CHLORIDE;SODIUM BICARBONATE;SODIUM CHLORIDE [Concomitant]
     Active Substance: POLYETHYLENE GLYCOL\POTASSIUM CHLORIDE\SODIUM BICARBONATE\SODIUM CHLORIDE
     Indication: CONSTIPATION
     Dosage: STYRKE: UKENDT?DOSIS: 1 BREV EFTER BEHOV, H JST 8 GANGE DGL
     Route: 048
     Dates: start: 20171214
  3. ANCOZAN [Concomitant]
     Active Substance: LOSARTAN POTASSIUM
     Indication: HYPERTENSION
     Dosage: 100 MG, QD
     Route: 048
     Dates: start: 201401
  4. DIGOXIN. [Concomitant]
     Active Substance: DIGOXIN
     Indication: HEART RATE IRREGULAR
     Dosage: 187.5 UG, QD
     Route: 048
     Dates: start: 201306
  5. ISOPTIN [Concomitant]
     Active Substance: VERAPAMIL HYDROCHLORIDE
     Indication: HEART RATE IRREGULAR
     Dosage: 120 MG, QD
     Route: 048
     Dates: start: 20130618

REACTIONS (8)
  - Areflexia [Fatal]
  - Depressed level of consciousness [Fatal]
  - Vomiting [Fatal]
  - Coma [Fatal]
  - Somnolence [Fatal]
  - Headache [Fatal]
  - Cerebral haemorrhage [Fatal]
  - Brain herniation [Fatal]

NARRATIVE: CASE EVENT DATE: 20200327
